FAERS Safety Report 13104190 (Version 1)
Quarter: 2017Q1

REPORT INFORMATION
  Report Type: Spontaneous
  Country: ES (occurrence: ES)
  Receive Date: 20170111
  Receipt Date: 20170111
  Transmission Date: 20170428
  Serious: Yes (Other)
  Sender: FDA-Public Use
  Company Number: ES-CONCORDIA PHARMACEUTICALS INC.-E2B_00007960

PATIENT
  Age: 60 Year
  Sex: Male

DRUGS (2)
  1. BENESTAN [Concomitant]
     Indication: PRODUCT USED FOR UNKNOWN INDICATION
     Route: 065
     Dates: start: 2015
  2. ALFUZOSIN [Suspect]
     Active Substance: ALFUZOSIN
     Indication: BENIGN PROSTATIC HYPERPLASIA
     Route: 048
     Dates: start: 20150913, end: 20151203

REACTIONS (2)
  - Product solubility abnormal [Unknown]
  - Drug ineffective [Unknown]

NARRATIVE: CASE EVENT DATE: 201509
